FAERS Safety Report 9821702 (Version 1)
Quarter: 2014Q1

REPORT INFORMATION
  Report Type: Spontaneous
  Country: US (occurrence: US)
  Receive Date: 20140116
  Receipt Date: 20140116
  Transmission Date: 20141002
  Serious: Yes (Other)
  Sender: FDA-Public Use
  Company Number: US-PFIZER INC-2014007926

PATIENT
  Age: 7 Decade
  Sex: Female

DRUGS (3)
  1. ZYVOX [Suspect]
     Indication: STAPHYLOCOCCAL INFECTION
     Dosage: UNK
  2. ZYVOX [Interacting]
     Indication: BACTERAEMIA
  3. CELEXA [Interacting]
     Dosage: UNK

REACTIONS (3)
  - Drug interaction [Recovered/Resolved]
  - Type I hypersensitivity [Recovered/Resolved]
  - Rash maculo-papular [Recovered/Resolved]
